FAERS Safety Report 26113216 (Version 1)
Quarter: 2025Q4

REPORT INFORMATION
  Report Type: Spontaneous
  Country: US (occurrence: None)
  Receive Date: 20251202
  Receipt Date: 20251202
  Transmission Date: 20260117
  Serious: Yes (Life-Threatening, Hospitalization)
  Sender: FDA-CTU
  Company Number: None

PATIENT
  Age: 64 Year
  Sex: Female
  Weight: 81 kg

DRUGS (7)
  1. NORTRIPTYLINE HYDROCHLORIDE [Suspect]
     Active Substance: NORTRIPTYLINE HYDROCHLORIDE
     Indication: Vestibular migraine
     Dosage: FREQUENCY : AT BEDTIME;?
     Route: 048
     Dates: start: 20251030
  2. RIZATRIPTAN [Suspect]
     Active Substance: RIZATRIPTAN
     Indication: Vestibular migraine
     Dosage: FREQUENCY : AS NEEDED;?
     Route: 048
     Dates: start: 20251030
  3. ELIQUIS [Concomitant]
     Active Substance: APIXABAN
  4. NORTRIPTYLINE [Concomitant]
     Active Substance: NORTRIPTYLINE
  5. calcium chews with vitamins K and D [Concomitant]
  6. MAGNESIUM [Concomitant]
     Active Substance: MAGNESIUM
  7. VITAMIN B COMPLEX NOS [Concomitant]
     Active Substance: CYANOCOBALAMIN\PYRIDOXINE HYDROCHLORIDE\RIBOFLAVIN\SODIUM PANTOTHENATE\THIAMINE HYDROCHLORIDE\VITAMI

REACTIONS (2)
  - Deep vein thrombosis [None]
  - Pulmonary embolism [None]

NARRATIVE: CASE EVENT DATE: 20251126
